FAERS Safety Report 21896798 (Version 1)
Quarter: 2023Q1

REPORT INFORMATION
  Report Type: Spontaneous
  Country: SI (occurrence: SI)
  Receive Date: 20230123
  Receipt Date: 20230123
  Transmission Date: 20230417
  Serious: Yes (Other)
  Sender: FDA-Public Use
  Company Number: None

PATIENT
  Age: 50 Year
  Sex: Female

DRUGS (6)
  1. FLUOROURACIL [Suspect]
     Active Substance: FLUOROURACIL
     Indication: Hormone receptor positive HER2 negative breast cancer
     Dosage: 50 MG/ML
     Dates: start: 20221123, end: 20221221
  2. BISOPROLOL [Concomitant]
     Active Substance: BISOPROLOL
     Dosage: 2X5MG, STRENGTH: 5MG
  3. TEGRETOL [Concomitant]
     Active Substance: CARBAMAZEPINE
     Dosage: STRENGTH: 400MG
  4. FENOFIBRATE [Concomitant]
     Active Substance: FENOFIBRATE
     Dosage: STRENGTH: 250MG
  5. CYMBALTA [Concomitant]
     Active Substance: DULOXETINE HYDROCHLORIDE
     Dosage: STRENGTH:60MG
  6. ROSUVASTATIN [Concomitant]
     Active Substance: ROSUVASTATIN
     Dosage: STRENGTH: 20MG

REACTIONS (1)
  - Erythema multiforme [Recovered/Resolved]

NARRATIVE: CASE EVENT DATE: 20221130
